FAERS Safety Report 25795876 (Version 1)
Quarter: 2025Q3

REPORT INFORMATION
  Report Type: Report from Study
  Country: GB (occurrence: GB)
  Receive Date: 20250912
  Receipt Date: 20250912
  Transmission Date: 20251020
  Serious: Yes (Other)
  Sender: AMGEN
  Company Number: GB-AMGEN-GBRSL2025112030

PATIENT
  Sex: Female

DRUGS (1)
  1. ADALIMUMAB [Suspect]
     Active Substance: ADALIMUMAB
     Indication: Psoriasis
     Dosage: 40 MILLIGRAM, Q2WK
     Route: 065

REACTIONS (7)
  - Immunodeficiency [Unknown]
  - Bronchial disorder [Unknown]
  - Sinusitis [Unknown]
  - Pharyngitis [Unknown]
  - Malaise [Unknown]
  - Intentional product misuse [Unknown]
  - Infection [Unknown]
